FAERS Safety Report 5290696-7 (Version None)
Quarter: 2007Q2

REPORT INFORMATION
  Report Type: 
  Country: None (occurrence: None)
  Receive Date: 20070405
  Receipt Date: 20070405
  Transmission Date: 20071010
  Serious: No
  Sender: FDA-Public Use
  Company Number: None

PATIENT
  Age: 41 Year
  Sex: Female

DRUGS (2)
  1. LEUKINE [Suspect]
     Indication: ACUTE MYELOID LEUKAEMIA
     Dosage: 500MCG SQ X 1
     Route: 058
     Dates: start: 20061122
  2. LEUKINE [Suspect]
     Indication: NEUTROPENIA
     Dosage: 500MCG SQ X 1
     Route: 058
     Dates: start: 20061122

REACTIONS (1)
  - LOSS OF CONSCIOUSNESS [None]
